FAERS Safety Report 15181516 (Version 1)
Quarter: 2018Q3

REPORT INFORMATION
  Report Type: Spontaneous
  Country: US (occurrence: US)
  Receive Date: 20180723
  Receipt Date: 20180723
  Transmission Date: 20181010
  Serious: No
  Sender: FDA-Public Use
  Company Number: US-SA-2018SA196081

PATIENT
  Age: 85 Year
  Sex: Female

DRUGS (1)
  1. TOUJEO [Suspect]
     Active Substance: INSULIN GLARGINE
     Indication: DIABETES MELLITUS
     Dosage: 20 U, Q PM AT 21:00
     Route: 065

REACTIONS (3)
  - Lymphoedema [Not Recovered/Not Resolved]
  - Tendonitis [Not Recovered/Not Resolved]
  - Visual impairment [Not Recovered/Not Resolved]
